FAERS Safety Report 9973202 (Version 2)
Quarter: 2014Q1

REPORT INFORMATION
  Report Type: Report from Study
  Country: US (occurrence: US)
  Receive Date: 20140306
  Receipt Date: 20140306
  Transmission Date: 20141002
  Serious: No
  Sender: FDA-Public Use
  Company Number: US-ABBVIE-13P-163-1125098-00

PATIENT
  Age: 47 Year
  Sex: Female
  Weight: 124 kg

DRUGS (13)
  1. HUMIRA [Suspect]
     Indication: CROHN^S DISEASE
     Dates: start: 20130722, end: 20130722
  2. HUMIRA [Suspect]
     Route: 058
  3. AZATHIOPRINE [Concomitant]
     Indication: PRODUCT USED FOR UNKNOWN INDICATION
  4. TRAZODONE [Concomitant]
     Indication: PRODUCT USED FOR UNKNOWN INDICATION
     Dosage: AT NIGHT
  5. SERTRALINE [Concomitant]
     Indication: ANXIETY
  6. PROTONIX [Concomitant]
     Indication: GASTROOESOPHAGEAL REFLUX DISEASE
  7. VITAMIN D3 [Concomitant]
     Indication: PRODUCT USED FOR UNKNOWN INDICATION
  8. COMPAZINE [Concomitant]
     Indication: PRODUCT USED FOR UNKNOWN INDICATION
  9. ANTIDIARRHEAL [Concomitant]
     Indication: PRODUCT USED FOR UNKNOWN INDICATION
     Dosage: FROM SAM^S CLUB- SEVEN A DAY PRN
  10. PROAIR [Concomitant]
     Indication: PRODUCT USED FOR UNKNOWN INDICATION
  11. RANTIDINE [Concomitant]
     Indication: GASTROOESOPHAGEAL REFLUX DISEASE
  12. PERCOCET [Concomitant]
     Indication: PAIN
     Dosage: PRN
  13. SLOWVENT INHALER [Concomitant]
     Indication: PRODUCT USED FOR UNKNOWN INDICATION

REACTIONS (7)
  - Fatigue [Recovered/Resolved]
  - Ocular icterus [Unknown]
  - Inappropriate schedule of drug administration [Unknown]
  - Burning sensation [Not Recovered/Not Resolved]
  - Back pain [Recovered/Resolved]
  - Nausea [Not Recovered/Not Resolved]
  - Vomiting [Recovered/Resolved]
